FAERS Safety Report 5894325-0 (Version None)
Quarter: 2008Q3

REPORT INFORMATION
  Report Type: 
  Country: None (occurrence: None)
  Receive Date: 20080923
  Receipt Date: 20080918
  Transmission Date: 20090109
  Serious: Yes (Disabling, Other)
  Sender: FDA-Public Use
  Company Number: GB-ALLERGAN-0811769US

PATIENT
  Age: 65 Year
  Sex: Male

DRUGS (4)
  1. LUMIGAN [Suspect]
     Indication: GLAUCOMA
     Dosage: UNK, QD
     Route: 047
     Dates: start: 20080902, end: 20080904
  2. AMLODIPINE [Concomitant]
     Indication: HYPERTENSION
     Dosage: 10 MG, QD
     Route: 048
  3. ALBUTEROL SPIROS [Concomitant]
     Indication: ASTHMA
     Dosage: 2.5 MG, QD
     Route: 055
  4. SERETIDE [Concomitant]
     Indication: ASTHMA
     Dosage: 500 UG, BID
     Route: 055

REACTIONS (4)
  - ASTHMA [None]
  - CATARACT [None]
  - EYE DISCHARGE [None]
  - VISION BLURRED [None]
